FAERS Safety Report 18196472 (Version 2)
Quarter: 2020Q3

REPORT INFORMATION
  Report Type: Report from Study
  Country: US (occurrence: US)
  Receive Date: 20200826
  Receipt Date: 20200909
  Transmission Date: 20201103
  Serious: Yes (Hospitalization, Other)
  Sender: FDA-Public Use
  Company Number: US-EMD SERONO-9037376

PATIENT
  Age: 53 Year
  Sex: Male
  Weight: 77 kg

DRUGS (3)
  1. REBIF [Suspect]
     Active Substance: INTERFERON BETA-1A
     Indication: MULTIPLE SCLEROSIS
     Route: 058
     Dates: start: 2005
  2. PERCOCET                           /00446701/ [Concomitant]
     Active Substance: ACETAMINOPHEN\OXYCODONE HYDROCHLORIDE\OXYCODONE TEREPHTHALATE
     Indication: PREMEDICATION
  3. REBIF [Suspect]
     Active Substance: INTERFERON BETA-1A
     Dosage: MANUAL
     Route: 058
     Dates: start: 20160125

REACTIONS (9)
  - Intervertebral disc protrusion [Not Recovered/Not Resolved]
  - Hepatitis C [Recovered/Resolved]
  - Stress [Not Recovered/Not Resolved]
  - Spinal operation [Recovered/Resolved]
  - Spinal fusion surgery [Recovered/Resolved]
  - Multiple sclerosis relapse [Recovered/Resolved]
  - Injection site induration [Not Recovered/Not Resolved]
  - Influenza like illness [Not Recovered/Not Resolved]
  - Bone pain [Not Recovered/Not Resolved]

NARRATIVE: CASE EVENT DATE: 201807
